FAERS Safety Report 7455470-1 (Version None)
Quarter: 2011Q2

REPORT INFORMATION
  Report Type: 
  Country: None (occurrence: None)
  Receive Date: 20110503
  Receipt Date: 20110429
  Transmission Date: 20111010
  Serious: Yes (Other)
  Sender: FDA-Public Use
  Company Number: NO-EISAI INC-E2020-09065-SPO-NO

PATIENT
  Sex: Female

DRUGS (9)
  1. REMERON [Suspect]
     Indication: DEPRESSION
     Route: 048
     Dates: start: 20080801
  2. REMERON [Suspect]
     Dosage: REDUCED DOSE UNKNOWN
     Route: 048
  3. ALBUTEROL SULFATE AUTOHALER [Concomitant]
  4. METOPROLOL SUCCINATE [Concomitant]
     Indication: HYPERTENSION
  5. ARICEPT [Suspect]
     Indication: DEMENTIA
     Route: 048
     Dates: start: 20080801, end: 20100101
  6. ATROVENT [Concomitant]
  7. VIVAL [Concomitant]
     Indication: ANXIETY
  8. ARICEPT [Suspect]
     Route: 048
     Dates: start: 20100101
  9. SERETIDE DISKUS [Concomitant]

REACTIONS (1)
  - TARDIVE DYSKINESIA [None]
